FAERS Safety Report 7781924-4 (Version None)
Quarter: 2011Q3

REPORT INFORMATION
  Report Type: 
  Country: None (occurrence: None)
  Receive Date: 20110927
  Receipt Date: 20110322
  Transmission Date: 20111222
  Serious: No
  Sender: FDA-Public Use
  Company Number: US-BAYER-2011-025792

PATIENT
  Age: 61 Year
  Sex: Female
  Weight: 58.957 kg

DRUGS (3)
  1. METFORMIN HCL [Concomitant]
  2. ULTRAVIST 150 [Suspect]
     Indication: COMPUTERISED TOMOGRAM
     Dosage: 80 ML, 2CC/SEC
     Route: 042
     Dates: start: 20110322
  3. CIPROFLOXACIN [Concomitant]

REACTIONS (4)
  - URTICARIA [None]
  - PRURITUS [None]
  - ERYTHEMA [None]
  - BURNING SENSATION [None]
